FAERS Safety Report 9748316 (Version 1)
Quarter: 2013Q4

REPORT INFORMATION
  Report Type: Spontaneous
  Country: US (occurrence: None)
  Receive Date: 20131206
  Receipt Date: 20131206
  Transmission Date: 20140711
  Serious: Yes (Other)
  Sender: FDA-Public Use
  Company Number: None

PATIENT
  Age: 92 Year
  Sex: Female
  Weight: 69.85 kg

DRUGS (10)
  1. CLEOCIN PHOSPHATE [Suspect]
     Indication: LOCAL SWELLING
     Dosage: 100ML/HR, Q8H, INTRAVENOUS
     Dates: start: 20131013, end: 20131014
  2. CLEOCIN PHASPHATE IV SOLUTION [Concomitant]
  3. INJECTABLES [Concomitant]
  4. LOVENOX [Concomitant]
  5. COUMADIN [Concomitant]
  6. PROTONIX [Concomitant]
  7. LEVOTHYROXINE [Concomitant]
  8. DIGOXIN [Concomitant]
  9. XALATAN [Concomitant]
  10. ULTRAM [Concomitant]

REACTIONS (1)
  - Neutropenia [None]
